FAERS Safety Report 15146272 (Version 1)
Quarter: 2018Q3

REPORT INFORMATION
  Report Type: Report from Study
  Country: IT (occurrence: IT)
  Receive Date: 20180715
  Receipt Date: 20180715
  Transmission Date: 20181010
  Serious: Yes (Other)
  Sender: FDA-Public Use
  Company Number: IT-TEVA-2018-IT-923726

PATIENT
  Age: 62 Year
  Sex: Female

DRUGS (1)
  1. CARBOPLATINO TEVA 10 MG/ML [Suspect]
     Active Substance: CARBOPLATIN
     Indication: OVARIAN NEOPLASM
     Route: 042
     Dates: start: 20180524, end: 20180524

REACTIONS (4)
  - Dizziness [Recovered/Resolved]
  - Hyperhidrosis [Recovered/Resolved]
  - Paraesthesia [Recovered/Resolved]
  - Anxiety [Recovered/Resolved]

NARRATIVE: CASE EVENT DATE: 20180524
